FAERS Safety Report 4641222-4 (Version None)
Quarter: 2005Q2

REPORT INFORMATION
  Report Type: 
  Country: None (occurrence: None)
  Receive Date: 20050419
  Receipt Date: 20050419
  Transmission Date: 20051028
  Serious: Yes (Hospitalization)
  Sender: FDA-Public Use
  Company Number: None

PATIENT
  Age: 82 Year
  Sex: Male
  Weight: 75.4 kg

DRUGS (9)
  1. OXYCODONE HCL [Suspect]
     Indication: PAIN
     Dosage: 5 MG EVERY 6 HOURS
     Dates: start: 20050222, end: 20050225
  2. ACETAMINOPHEN [Concomitant]
  3. COMBIVENT [Concomitant]
  4. ARTIFICIAL TEARS [Concomitant]
  5. DOCUSATE [Concomitant]
  6. LISINOPRIL [Concomitant]
  7. M.V.I. [Concomitant]
  8. OMEPRAZOLE [Concomitant]
  9. PREDNISONE TAB [Concomitant]

REACTIONS (8)
  - AGITATION [None]
  - CONFUSIONAL STATE [None]
  - DIZZINESS [None]
  - DRUG HYPERSENSITIVITY [None]
  - HOSTILITY [None]
  - MENTAL STATUS CHANGES [None]
  - METASTASES TO CENTRAL NERVOUS SYSTEM [None]
  - URINARY TRACT INFECTION [None]
